FAERS Safety Report 4511513-6 (Version None)
Quarter: 2004Q4

REPORT INFORMATION
  Report Type: 
  Country: None (occurrence: None)
  Receive Date: 20041129
  Receipt Date: 20040908
  Transmission Date: 20050328
  Serious: No
  Sender: FDA-Public Use
  Company Number: US-BRISTOL-MYERS SQUIBB COMPANY-12695649

PATIENT
  Age: 38 Year
  Sex: Male
  Weight: 86 kg

DRUGS (4)
  1. ABILIFY [Suspect]
     Indication: ANXIETY DISORDER
     Route: 048
     Dates: start: 20030901
  2. ABILIFY [Suspect]
     Indication: NERVOUSNESS
     Route: 048
     Dates: start: 20030901
  3. UNIVASC [Concomitant]
  4. ZOCOR [Concomitant]

REACTIONS (1)
  - INSOMNIA [None]
